FAERS Safety Report 7737465-3 (Version None)
Quarter: 2011Q3

REPORT INFORMATION
  Report Type: 
  Country: None (occurrence: None)
  Receive Date: 20110908
  Receipt Date: 20110902
  Transmission Date: 20111222
  Serious: Yes (Life-Threatening, Hospitalization, Disabling)
  Sender: FDA-Public Use
  Company Number: CA-GLAXOSMITHKLINE-A0937206A

PATIENT
  Sex: Male
  Weight: 138 kg

DRUGS (5)
  1. ARANESP [Concomitant]
     Indication: ANAEMIA
     Dosage: 30MCG WEEKLY
     Route: 058
  2. RABEPRAZOLE SODIUM [Concomitant]
     Indication: DYSPEPSIA
     Dosage: 20MG PER DAY
  3. SYNTHROID [Concomitant]
     Indication: HYPOTHYROIDISM
  4. QUININE SULFATE [Concomitant]
     Indication: MUSCLE SPASMS
     Dosage: 300MG AS REQUIRED
     Dates: start: 20110101
  5. PROMACTA [Suspect]
     Indication: PRODUCT USED FOR UNKNOWN INDICATION
     Dosage: 75MG PER DAY
     Route: 065
     Dates: start: 20090708, end: 20110602

REACTIONS (10)
  - HOSPITALISATION [None]
  - RENAL IMPAIRMENT [None]
  - THROMBOCYTOPENIA [None]
  - DRUG INEFFECTIVE [None]
  - THERAPY CESSATION [None]
  - FLUID OVERLOAD [None]
  - ANAEMIA [None]
  - DYSPNOEA [None]
  - RENAL FAILURE CHRONIC [None]
  - ASTHENIA [None]
